FAERS Safety Report 13604361 (Version 1)
Quarter: 2017Q2

REPORT INFORMATION
  Report Type: Spontaneous
  Country: US (occurrence: US)
  Receive Date: 20170602
  Receipt Date: 20170602
  Transmission Date: 20170830
  Serious: Yes (Other)
  Sender: FDA-Public Use
  Company Number: US-VIFOR (INTERNATIONAL) INC.-VIT-2016-08611

PATIENT
  Age: 63 Year
  Sex: Female
  Weight: 65.38 kg

DRUGS (5)
  1. CALCIUM ACETATE. [Concomitant]
     Active Substance: CALCIUM ACETATE
  2. VELTASSA [Suspect]
     Active Substance: PATIROMER
     Indication: BLOOD POTASSIUM INCREASED
     Dosage: DAYS NOT ON DIALYSIS
     Route: 048
     Dates: start: 2016
  3. HUMALOG [Concomitant]
     Active Substance: INSULIN LISPRO
  4. ATORVASTATIN [Concomitant]
     Active Substance: ATORVASTATIN
  5. MIDODRINE [Concomitant]
     Active Substance: MIDODRINE

REACTIONS (3)
  - Inappropriate schedule of drug administration [Unknown]
  - Fatigue [Unknown]
  - Hypertensive crisis [Recovering/Resolving]

NARRATIVE: CASE EVENT DATE: 2016
